FAERS Safety Report 5715807-8 (Version None)
Quarter: 2008Q2

REPORT INFORMATION
  Report Type: 
  Country: None (occurrence: None)
  Receive Date: 20080424
  Receipt Date: 20080414
  Transmission Date: 20081010
  Serious: Yes (Death)
  Sender: FDA-Public Use
  Company Number: FR-BRISTOL-MYERS SQUIBB COMPANY-14162390

PATIENT
  Age: 74 Year
  Sex: Female

DRUGS (9)
  1. GLUCOPHAGE [Suspect]
     Route: 048
     Dates: end: 20080113
  2. CLOZAPINE [Suspect]
     Indication: PSYCHOTIC DISORDER
     Dosage: 25MG 1/1 DAY FROM 04JAN08-11JAN08.
     Route: 048
     Dates: start: 20080111, end: 20080113
  3. AMARYL [Suspect]
     Route: 048
     Dates: end: 20080113
  4. MODOPAR [Suspect]
     Dosage: CUMULATIVE DOSE-375MG
     Route: 048
     Dates: end: 20080113
  5. MODOPAR LP [Suspect]
     Dosage: MODOPAR LP 125-100MG/25MG
     Route: 048
     Dates: end: 20080113
  6. ZOPICLONE [Suspect]
     Route: 048
     Dates: end: 20080113
  7. AUGMENTIN '125' [Suspect]
     Route: 048
     Dates: start: 20080112, end: 20080113
  8. MODECATE [Concomitant]
  9. AMOXICILLIN AND CLAVULANATE POTASSIUM [Concomitant]
     Indication: PRODUCTIVE COUGH
     Dates: start: 20080112

REACTIONS (2)
  - ARRHYTHMIA [None]
  - COUGH [None]
